FAERS Safety Report 11816132 (Version 5)
Quarter: 2016Q1

REPORT INFORMATION
  Report Type: Spontaneous
  Country: JP (occurrence: JP)
  Receive Date: 20151209
  Receipt Date: 20160308
  Transmission Date: 20160525
  Serious: Yes (Disabling, Other)
  Sender: FDA-Public Use
  Company Number: JP-GILEAD-2015-0182514

PATIENT
  Age: 82 Year
  Sex: Female
  Weight: 60.7 kg

DRUGS (20)
  1. NEOPHAGEN                          /00467204/ [Concomitant]
     Active Substance: CYSTEINE\GLYCINE\GLYCYRRHIZIN
     Dosage: 1 DF, TID
     Route: 048
     Dates: start: 20151022
  2. PREDNISOLONE. [Concomitant]
     Active Substance: PREDNISOLONE
     Dosage: 5 MG, TID
     Route: 048
     Dates: start: 20151121, end: 20151123
  3. MOHRUS [Concomitant]
     Active Substance: KETOPROFEN
     Dosage: 1 DF, QD
     Route: 062
     Dates: start: 20151022
  4. PREDNISOLONE. [Concomitant]
     Active Substance: PREDNISOLONE
     Dosage: 5 MG, 4 TABLETS A DAY (2 TABS IN THE MORNING, 1 TAB AT NOON, 1 TAB IN THE EVENING)
     Route: 048
     Dates: start: 20151119, end: 20151120
  5. BOFUTSUSHOSAN [Concomitant]
     Active Substance: HERBALS
     Dosage: 2.5 G, TID
     Route: 048
     Dates: start: 20151022
  6. SOVALDI [Suspect]
     Active Substance: SOFOSBUVIR
     Indication: CHRONIC HEPATITIS C
     Dosage: 400 MG, QD
     Route: 048
     Dates: start: 20151023, end: 20151126
  7. REBETOL [Suspect]
     Active Substance: RIBAVIRIN
     Dosage: 200 MG, BID
     Route: 048
     Dates: start: 20151119, end: 20151126
  8. INTEBAN [Concomitant]
     Active Substance: INDOMETHACIN
     Dosage: 50 MG, UNK
     Route: 054
     Dates: start: 20151022
  9. SUNRYTHM [Concomitant]
     Active Substance: PILSICAINIDE HYDROCHLORIDE
     Dosage: 50 MG, BID
     Route: 048
     Dates: start: 20151022
  10. PREDNISOLONE. [Concomitant]
     Active Substance: PREDNISOLONE
     Dosage: 0.25 MG, UNK
     Route: 048
     Dates: start: 20151126
  11. OLMETEC [Concomitant]
     Active Substance: OLMESARTAN MEDOXOMIL
     Dosage: 20 MG, UNK
     Route: 048
     Dates: start: 20151022
  12. ATELEC [Concomitant]
     Active Substance: CILNIDIPINE
     Dosage: 10 MG, QD
     Route: 048
     Dates: start: 20151022
  13. LENDORMIN [Concomitant]
     Active Substance: BROTIZOLAM
     Dosage: 0.5 MG, QD
     Route: 048
     Dates: start: 20151022
  14. TAGAMET [Concomitant]
     Active Substance: CIMETIDINE
     Dosage: 400 MG, QD
     Route: 048
     Dates: start: 20151022
  15. PREDNISOLONE. [Concomitant]
     Active Substance: PREDNISOLONE
     Dosage: 0.25 MG, UNK
     Route: 048
     Dates: start: 20151022
  16. REBETOL [Suspect]
     Active Substance: RIBAVIRIN
     Indication: CHRONIC HEPATITIS C
     Dosage: 400 MG, BID
     Route: 048
     Dates: start: 20151023, end: 20151118
  17. PURSENNID                          /00142207/ [Concomitant]
     Active Substance: SENNOSIDES A AND B
     Dosage: 12 MG, QD
     Route: 048
     Dates: start: 20151022
  18. URSO [Concomitant]
     Active Substance: URSODIOL
     Dosage: 100 MG, TID
     Route: 048
     Dates: start: 20151022
  19. PREDNISOLONE. [Concomitant]
     Active Substance: PREDNISOLONE
     Dosage: 5 MG, 3 TABLETS A DAY (2 TABS AT NOON, 1 TAB IN THE EVENING)
     Route: 048
     Dates: start: 20151118, end: 20151118
  20. PREDNISOLONE. [Concomitant]
     Active Substance: PREDNISOLONE
     Dosage: 5 MG, BID
     Route: 048
     Dates: start: 20151124, end: 20151126

REACTIONS (5)
  - Anaemia [Recovered/Resolved]
  - Sudden hearing loss [Not Recovered/Not Resolved]
  - Dizziness [Recovering/Resolving]
  - Deafness [Recovering/Resolving]
  - Deafness [Recovered/Resolved with Sequelae]

NARRATIVE: CASE EVENT DATE: 20151110
